FAERS Safety Report 17962735 (Version 1)
Quarter: 2020Q2

REPORT INFORMATION
  Report Type: Spontaneous
  Country: PL (occurrence: PL)
  Receive Date: 20200630
  Receipt Date: 20200630
  Transmission Date: 20200714
  Serious: Yes (Other)
  Sender: FDA-Public Use
  Company Number: PL-ACCORD-187802

PATIENT
  Age: 66 Year
  Sex: Female
  Weight: 71 kg

DRUGS (3)
  1. ETOPOSID EBEWE [Suspect]
     Active Substance: ETOPOSIDE
     Indication: OVARIAN CANCER
     Dosage: DOSE: 184; DOSE UNIT, 20 MG/ML
     Route: 042
     Dates: start: 20170529, end: 20170811
  2. CISPLATIN ACCORD [Suspect]
     Active Substance: CISPLATIN
     Indication: OVARIAN CANCER
     Dosage: 1 MG/ML,DOSE: 36 DOSE UNIT
     Route: 042
     Dates: start: 20170529, end: 20170811
  3. BLEOMEDAC [Suspect]
     Active Substance: BLEOMYCIN SULFATE
     Indication: OVARIAN CANCER
     Dosage: DOSE: 30,15,000 IU / VIAL,
     Route: 042
     Dates: start: 20170529, end: 20170811

REACTIONS (2)
  - Pyrexia [Recovering/Resolving]
  - Pancytopenia [Recovering/Resolving]

NARRATIVE: CASE EVENT DATE: 20170822
